FAERS Safety Report 7996111-4 (Version None)
Quarter: 2011Q4

REPORT INFORMATION
  Report Type: 
  Country: None (occurrence: None)
  Receive Date: 20111220
  Receipt Date: 20111213
  Transmission Date: 20120403
  Serious: Yes (Other)
  Sender: FDA-Public Use
  Company Number: PHEH2011US00450

PATIENT
  Sex: Male

DRUGS (17)
  1. LYRICA [Concomitant]
     Dosage: 300 MG, BID
  2. UROXATRAL [Concomitant]
  3. LIPITOR [Concomitant]
  4. ACETAMINOPHEN [Concomitant]
  5. AREDIA [Suspect]
     Dosage: 60 MG, PER QUARTER
  6. ACTONEL [Concomitant]
     Dosage: 70 MG, QW
  7. NITROGLYCERIN [Concomitant]
  8. DOXYCYCLINE HYCLATE [Concomitant]
  9. AVODART [Concomitant]
  10. VALTREX [Concomitant]
  11. ASACOL [Concomitant]
  12. IMODIUM [Concomitant]
     Dosage: 4 MG, BID
  13. EFEXOR                                  /USA/ [Concomitant]
  14. ZOMETA [Suspect]
     Dosage: 4 MG, QMO
  15. PERIDEX [Concomitant]
  16. FOSAMAX [Suspect]
     Dosage: 70 MG, QW
  17. CELEBREX [Concomitant]
     Dosage: 200 MG, BID

REACTIONS (29)
  - DIVERTICULUM [None]
  - OSTEONECROSIS OF JAW [None]
  - OSTEOPENIA [None]
  - OSTEOPOROSIS [None]
  - BONE LOSS [None]
  - PERIODONTAL INFECTION [None]
  - GAIT DISTURBANCE [None]
  - OROPHARYNGEAL PAIN [None]
  - QUALITY OF LIFE DECREASED [None]
  - COLITIS MICROSCOPIC [None]
  - LEUKOCYTOSIS [None]
  - ARTERIOSCLEROSIS [None]
  - FEAR [None]
  - HIATUS HERNIA [None]
  - LYMPHADENOPATHY [None]
  - ARTHRALGIA [None]
  - NASAL CONGESTION [None]
  - MUSCULAR WEAKNESS [None]
  - PAIN [None]
  - ANXIETY [None]
  - DIARRHOEA [None]
  - BABESIOSIS [None]
  - INJURY [None]
  - PATELLA FRACTURE [None]
  - OSTEOARTHRITIS [None]
  - MALAISE [None]
  - DECREASED INTEREST [None]
  - UPPER LIMB FRACTURE [None]
  - EXPOSED BONE IN JAW [None]
